FAERS Safety Report 10055106 (Version 2)
Quarter: 2014Q2

REPORT INFORMATION
  Report Type: Report from Study
  Country: US (occurrence: US)
  Receive Date: 20140402
  Receipt Date: 20140402
  Transmission Date: 20141212
  Serious: No
  Sender: FDA-Public Use
  Company Number: US-SANOFI-AVENTIS-2013SA039436

PATIENT
  Age: 39 Year
  Sex: Female

DRUGS (7)
  1. AUBAGIO [Suspect]
     Indication: MULTIPLE SCLEROSIS
     Route: 048
     Dates: start: 20130224
  2. AUBAGIO [Suspect]
     Indication: MULTIPLE SCLEROSIS
     Route: 065
     Dates: start: 20131222
  3. AUBAGIO [Suspect]
     Indication: MULTIPLE SCLEROSIS
     Route: 048
     Dates: start: 20130323
  4. NEBIVOLOL [Concomitant]
     Indication: HYPERTENSION
  5. LOESTRIN FE [Concomitant]
     Indication: CONTRACEPTION
  6. MULTIVITAMINS [Concomitant]
  7. MAXALT [Concomitant]
     Indication: MIGRAINE

REACTIONS (5)
  - Nausea [Not Recovered/Not Resolved]
  - Expired product administered [Unknown]
  - Diarrhoea [Not Recovered/Not Resolved]
  - Gastrointestinal pain [Not Recovered/Not Resolved]
  - Diarrhoea [Not Recovered/Not Resolved]
